FAERS Safety Report 4970499-0 (Version None)
Quarter: 2006Q2

REPORT INFORMATION
  Report Type: 
  Country: None (occurrence: None)
  Receive Date: 20060411
  Receipt Date: 20060411
  Transmission Date: 20061013
  Serious: Yes (Disabling)
  Sender: FDA-Public Use
  Company Number: None

PATIENT
  Age: 49 Year
  Sex: Male
  Weight: 73.4827 kg

DRUGS (1)
  1. AVELOX [Suspect]
     Indication: SINUSITIS
     Dosage: 400 MG 1/DAY X 10 DAYS PO
     Route: 048
     Dates: start: 20050910, end: 20050920

REACTIONS (7)
  - EXERCISE TOLERANCE DECREASED [None]
  - HEADACHE [None]
  - IMPAIRED WORK ABILITY [None]
  - MOVEMENT DISORDER [None]
  - NECK PAIN [None]
  - POLLAKIURIA [None]
  - TENDONITIS [None]
